FAERS Safety Report 14204414 (Version 1)
Quarter: 2017Q4

REPORT INFORMATION
  Report Type: Spontaneous
  Country: US (occurrence: US)
  Receive Date: 20171120
  Receipt Date: 20171120
  Transmission Date: 20180321
  Serious: No
  Sender: FDA-Public Use
  Company Number: US-SUNOVION-2017SUN004813

PATIENT
  Age: 6 Decade
  Sex: Female

DRUGS (3)
  1. LATUDA [Suspect]
     Active Substance: LURASIDONE HYDROCHLORIDE
     Indication: SCHIZOAFFECTIVE DISORDER
     Dosage: 60 MG, UNK
     Route: 048
  2. XANAX [Concomitant]
     Active Substance: ALPRAZOLAM
     Dosage: 0.25 MG, QID
     Route: 048
  3. TRAZODONE [Concomitant]
     Active Substance: TRAZODONE HYDROCHLORIDE
     Indication: SLEEP DISORDER
     Dosage: 100 MG, QHS
     Route: 048

REACTIONS (3)
  - Hypomania [Not Recovered/Not Resolved]
  - Tardive dyskinesia [Not Recovered/Not Resolved]
  - Irritability [Not Recovered/Not Resolved]
